FAERS Safety Report 5683143-4 (Version None)
Quarter: 2008Q1

REPORT INFORMATION
  Report Type: 
  Country: None (occurrence: None)
  Receive Date: 20080327
  Receipt Date: 20080313
  Transmission Date: 20080703
  Serious: Yes (Hospitalization, Other)
  Sender: FDA-Public Use
  Company Number: US-AMGEN-KDL265592

PATIENT
  Sex: Male

DRUGS (12)
  1. PROCRIT [Suspect]
     Indication: ANAEMIA OF MALIGNANT DISEASE
     Dates: start: 20070901, end: 20080204
  2. PROCRIT [Suspect]
     Indication: RENAL FAILURE CHRONIC
  3. ARANESP [Suspect]
     Indication: ANAEMIA OF MALIGNANT DISEASE
     Dates: start: 20061128, end: 20070228
  4. VALIUM [Concomitant]
  5. METOPROLOL TARTRATE [Concomitant]
  6. LISINOPRIL [Concomitant]
  7. TERAZOSIN HCL [Concomitant]
  8. ZANTAC [Concomitant]
  9. PROTONIX [Concomitant]
  10. CHLORAMBUCIL [Concomitant]
     Dates: start: 20071101
  11. PREDNISONE TAB [Concomitant]
     Dates: start: 20070301
  12. FOLIC ACID [Concomitant]

REACTIONS (2)
  - APLASIA PURE RED CELL [None]
  - CHRONIC LYMPHOCYTIC LEUKAEMIA [None]
